FAERS Safety Report 20499142 (Version 8)
Quarter: 2022Q4

REPORT INFORMATION
  Report Type: Spontaneous
  Country: US (occurrence: US)
  Receive Date: 20220222
  Receipt Date: 20221006
  Transmission Date: 20230112
  Serious: Yes (Hospitalization)
  Sender: FDA-Public Use
  Company Number: US-BIOGEN-2022BI01095666

PATIENT
  Age: 47 Year
  Sex: Female

DRUGS (1)
  1. TYSABRI [Suspect]
     Active Substance: NATALIZUMAB
     Indication: Multiple sclerosis
     Route: 050
     Dates: start: 20190301

REACTIONS (3)
  - Road traffic accident [Recovered/Resolved]
  - Nervousness [Unknown]
  - Post-traumatic stress disorder [Unknown]

NARRATIVE: CASE EVENT DATE: 20220128
